FAERS Safety Report 19328516 (Version 5)
Quarter: 2022Q4

REPORT INFORMATION
  Report Type: Report from Study
  Country: CO (occurrence: CO)
  Receive Date: 20210528
  Receipt Date: 20221021
  Transmission Date: 20230113
  Serious: Yes (Hospitalization, Other)
  Sender: FDA-Public Use
  Company Number: CO-ABBVIE-21K-036-3925408-00

PATIENT
  Sex: Male
  Weight: 101 kg

DRUGS (5)
  1. HUMIRA [Suspect]
     Active Substance: ADALIMUMAB
     Indication: Rheumatoid arthritis
     Route: 058
     Dates: end: 20220916
  2. HUMIRA [Suspect]
     Active Substance: ADALIMUMAB
     Route: 058
  3. HUMIRA [Suspect]
     Active Substance: ADALIMUMAB
     Route: 058
  4. LEFLUNOMIDE [Concomitant]
     Active Substance: LEFLUNOMIDE
     Indication: Rheumatoid arthritis
  5. METHOTREXATE [Concomitant]
     Active Substance: METHOTREXATE
     Indication: Rheumatoid arthritis
     Route: 048

REACTIONS (34)
  - Hallucination, visual [Recovering/Resolving]
  - Psychotic disorder [Recovering/Resolving]
  - Amnesia [Recovering/Resolving]
  - Skin disorder [Not Recovered/Not Resolved]
  - Mental disorder [Recovering/Resolving]
  - Peripheral swelling [Not Recovered/Not Resolved]
  - Dysstasia [Unknown]
  - Sjogren^s syndrome [Recovering/Resolving]
  - Peripheral swelling [Not Recovered/Not Resolved]
  - Immunodeficiency [Recovered/Resolved]
  - Pain in extremity [Not Recovered/Not Resolved]
  - Obesity [Recovering/Resolving]
  - Spinal disorder [Recovering/Resolving]
  - Somnolence [Recovering/Resolving]
  - Anger [Recovering/Resolving]
  - Swelling [Not Recovered/Not Resolved]
  - Back disorder [Unknown]
  - Hypocalcaemia [Unknown]
  - Anxiety [Recovering/Resolving]
  - Inflammation [Unknown]
  - Depression [Recovering/Resolving]
  - Blood calcium decreased [Recovering/Resolving]
  - Hypertension [Recovering/Resolving]
  - Therapeutic response shortened [Unknown]
  - Fungal infection [Recovering/Resolving]
  - Abdominal pain upper [Recovering/Resolving]
  - Peripheral swelling [Recovering/Resolving]
  - Pain [Not Recovered/Not Resolved]
  - Arthralgia [Recovering/Resolving]
  - Back pain [Recovering/Resolving]
  - Headache [Unknown]
  - Drug ineffective [Not Recovered/Not Resolved]
  - Rheumatoid arthritis [Not Recovered/Not Resolved]
  - Therapeutic response shortened [Not Recovered/Not Resolved]

NARRATIVE: CASE EVENT DATE: 20160101
